FAERS Safety Report 8183723-0 (Version None)
Quarter: 2012Q1

REPORT INFORMATION
  Report Type: 
  Country: None (occurrence: None)
  Receive Date: 20120305
  Receipt Date: 20120224
  Transmission Date: 20120608
  Serious: Yes (Other)
  Sender: FDA-Public Use
  Company Number: US-JNJFOC-20120213561

PATIENT
  Sex: Female
  Weight: 54.43 kg

DRUGS (4)
  1. XARELTO [Suspect]
     Indication: ATRIAL FIBRILLATION
     Route: 048
     Dates: start: 20120222
  2. CAFERGOT [Concomitant]
     Indication: MIGRAINE
  3. PREMARIN [Concomitant]
     Indication: HORMONE REPLACEMENT THERAPY
  4. ALBUTEROL [Concomitant]
     Indication: ASTHMA
     Route: 055

REACTIONS (4)
  - LYMPHADENOPATHY [None]
  - PAIN IN JAW [None]
  - EAR PAIN [None]
  - SWOLLEN TONGUE [None]
